FAERS Safety Report 14212286 (Version 1)
Quarter: 2017Q4

REPORT INFORMATION
  Report Type: Not Available
  Country: US (occurrence: US)
  Receive Date: 20171121
  Receipt Date: 20171121
  Transmission Date: 20180321
  Serious: Yes (Other)
  Sender: FDA-Public Use
  Company Number: US-NEUROCRINE BIOSCIENCES INC.-2017NBI01536

PATIENT
  Age: 35 Year
  Sex: Male

DRUGS (1)
  1. INGREZZA [Suspect]
     Active Substance: VALBENAZINE
     Indication: PRODUCT USED FOR UNKNOWN INDICATION
     Route: 048
     Dates: start: 20171103, end: 20171107

REACTIONS (3)
  - Suicidal ideation [Unknown]
  - Anger [Unknown]
  - Influenza like illness [Unknown]

NARRATIVE: CASE EVENT DATE: 20171105
